FAERS Safety Report 15485094 (Version 5)
Quarter: 2019Q3

REPORT INFORMATION
  Report Type: Report from Study
  Country: US (occurrence: US)
  Receive Date: 20181010
  Receipt Date: 20190828
  Transmission Date: 20191004
  Serious: Yes (Hospitalization)
  Sender: FDA-Public Use
  Company Number: US-ACTELION-A-NJ2018-177749

PATIENT
  Age: 8 Month
  Sex: Female
  Weight: 39.91 kg

DRUGS (15)
  1. BOSENTAN TABLET 32 MG PED US [Suspect]
     Active Substance: BOSENTAN
     Dosage: 16 MG, BID VIA G-TUBE
     Route: 049
     Dates: start: 20180731
  2. ALDACTAZIDE [Concomitant]
     Active Substance: HYDROCHLOROTHIAZIDE\SPIRONOLACTONE
     Dosage: 6 MG, BID
  3. BUDESONIDE. [Concomitant]
     Active Substance: BUDESONIDE
  4. CLONIDINE. [Concomitant]
     Active Substance: CLONIDINE
  5. LANSOPRAZOLE. [Concomitant]
     Active Substance: LANSOPRAZOLE
     Dosage: 3 MG/ML, QD
  6. NYSTATIN. [Concomitant]
     Active Substance: NYSTATIN
  7. BOSENTAN TABLET 32 MG PED US [Suspect]
     Active Substance: BOSENTAN
     Indication: PULMONARY ARTERIAL HYPERTENSION
     Dosage: 32 MG, BID
     Route: 048
  8. REVATIO [Concomitant]
     Active Substance: SILDENAFIL CITRATE
     Dosage: 10 MG, TID
  9. GLYCERIN. [Concomitant]
     Active Substance: GLYCERIN
  10. MELATONIN [Concomitant]
     Active Substance: MELATONIN
     Dosage: 3 MG, UNK
  11. ALBUTEROL. [Concomitant]
     Active Substance: ALBUTEROL
  12. ZOFRAN [Concomitant]
     Active Substance: ONDANSETRON HYDROCHLORIDE
  13. TOBRAMYCIN. [Concomitant]
     Active Substance: TOBRAMYCIN
     Dosage: 150 MG, BID
     Route: 055
  14. MIRALAX [Concomitant]
     Active Substance: POLYETHYLENE GLYCOL 3350
     Dosage: 8.5 G, UNK
  15. SIMETHICONE (DIMETHICONE) [Concomitant]
     Active Substance: DIMETHICONE
     Dosage: 40 MG, UNK

REACTIONS (9)
  - Unevaluable event [Not Recovered/Not Resolved]
  - Dyspnoea [Recovering/Resolving]
  - Surgical procedure repeated [Recovered/Resolved]
  - Tracheostomy infection [Recovering/Resolving]
  - Pneumonia aspiration [Unknown]
  - Gastrointestinal stoma complication [Recovered/Resolved]
  - Vomiting [Unknown]
  - Intestinal obstruction [Not Recovered/Not Resolved]
  - Diarrhoea [Unknown]

NARRATIVE: CASE EVENT DATE: 20180819
